FAERS Safety Report 4358892-0 (Version None)
Quarter: 2004Q2

REPORT INFORMATION
  Report Type: 
  Country: None (occurrence: None)
  Receive Date: 20040517
  Receipt Date: 20040506
  Transmission Date: 20050107
  Serious: Yes (Other)
  Sender: FDA-Public Use
  Company Number: PHEH2004US05030

PATIENT
  Age: 57 Year
  Sex: Female

DRUGS (7)
  1. ZELNORM [Suspect]
     Indication: IRRITABLE BOWEL SYNDROME
     Dosage: UNK,UNK
     Route: 048
  2. PREVACID [Concomitant]
  3. DITROPAN [Concomitant]
  4. ATIVAN [Concomitant]
  5. ESTRADERM [Concomitant]
  6. LITHIUM CARBONATE [Concomitant]
  7. SYNTHROID [Concomitant]

REACTIONS (2)
  - COLITIS [None]
  - DIARRHOEA HAEMORRHAGIC [None]
